FAERS Safety Report 5337929-6 (Version None)
Quarter: 2007Q2

REPORT INFORMATION
  Report Type: 
  Country: None (occurrence: None)
  Receive Date: 20070327
  Receipt Date: 20061129
  Transmission Date: 20071010
  Serious: No
  Sender: FDA-Public Use
  Company Number: 231766

PATIENT
  Age: 68 Year
  Sex: Female
  Weight: 70.3 kg

DRUGS (8)
  1. AVASTIN [Suspect]
     Indication: NON-SMALL CELL LUNG CANCER
     Dosage: 1050 MG,Q3W, INTRAVENOUS
     Route: 042
     Dates: start: 20060801
  2. DILANTIN [Concomitant]
  3. FOLIC ACID [Concomitant]
  4. NEURONTIN [Concomitant]
  5. LAMICTAL [Concomitant]
  6. ADVAIR DISKUS 100/50 [Concomitant]
  7. LESCOL [Concomitant]
  8. NIZAX (NIZATIDINE) [Concomitant]

REACTIONS (1)
  - DRUG INTERACTION [None]
